FAERS Safety Report 8793438 (Version 2)
Quarter: 2014Q2

REPORT INFORMATION
  Report Type: Spontaneous
  Country: US (occurrence: US)
  Receive Date: 20120917
  Receipt Date: 20140526
  Transmission Date: 20141212
  Serious: No
  Sender: FDA-Public Use
  Company Number: US-ASTRAZENECA-2012SE70019

PATIENT
  Age: 46 Year
  Sex: Male

DRUGS (4)
  1. NEXIUM [Suspect]
     Dosage: GENERIC
     Route: 048
  2. NEXIUM [Suspect]
     Route: 048
  3. NEXIUM [Suspect]
     Route: 048
  4. NEXIUM [Suspect]
     Route: 048

REACTIONS (8)
  - Gastrooesophageal reflux disease [Unknown]
  - Sleep apnoea syndrome [Unknown]
  - Dyspepsia [Unknown]
  - Condition aggravated [Unknown]
  - Chest pain [Unknown]
  - Abdominal pain upper [Unknown]
  - Intentional product misuse [Unknown]
  - Drug dose omission [Unknown]
